FAERS Safety Report 9991613 (Version 2)
Quarter: 2014Q1

REPORT INFORMATION
  Report Type: Report from Study
  Country: AU (occurrence: AU)
  Receive Date: 20140310
  Receipt Date: 20140327
  Transmission Date: 20141002
  Serious: Yes (Hospitalization)
  Sender: FDA-Public Use
  Company Number: AU-VERTEX PHARMACEUTICALS INC-2014-001047

PATIENT
  Age: 23 Year
  Sex: Male
  Weight: 71 kg

DRUGS (27)
  1. VX-809 FDC [Suspect]
     Indication: CYSTIC FIBROSIS
     Dosage: 600 MG, QD
     Route: 048
     Dates: start: 20140103, end: 20140227
  2. VX-770 FDC [Suspect]
     Indication: CYSTIC FIBROSIS
     Dosage: 250 MG, QAM
     Route: 048
     Dates: start: 20140103, end: 20140227
  3. VX-770 [Suspect]
     Indication: CYSTIC FIBROSIS
     Dosage: 250 MG, QPM
     Route: 048
     Dates: start: 20140103, end: 20140227
  4. BIOZINC [Concomitant]
     Indication: PROPHYLAXIS
     Dosage: 100 MG, QD
     Route: 048
     Dates: start: 2011
  5. CALTRATE [Concomitant]
     Indication: PROPHYLAXIS
     Dosage: 600 MG, QD
     Route: 048
     Dates: start: 2009
  6. AZITHROMYCIN [Concomitant]
     Indication: PROPHYLAXIS
     Dosage: 900 MG, UNK
     Route: 048
     Dates: start: 2003
  7. AZITHROMYCIN [Concomitant]
     Dosage: 500 MG, QD
  8. SERETIDE [Concomitant]
     Indication: CYSTIC FIBROSIS LUNG
     Dosage: UNK
     Route: 055
     Dates: start: 20130919
  9. CIPROXIN [Concomitant]
     Indication: HAEMOPHILUS INFECTION
     Dosage: 500 MG, BID
     Route: 048
     Dates: start: 20130919, end: 20131003
  10. SYMBICORT [Concomitant]
     Indication: CYSTIC FIBROSIS
     Dosage: 400/12 MG
     Route: 055
     Dates: start: 2007, end: 20130919
  11. BRICANYL [Concomitant]
     Indication: CYSTIC FIBROSIS
     Dosage: UNK, BID
     Route: 055
     Dates: start: 1992
  12. HYPERTONIC SALINE SOLUTION [Concomitant]
     Indication: CYSTIC FIBROSIS
     Dosage: 5 ML, UNK
     Route: 055
     Dates: start: 2012
  13. HYPERTONIC SALINE SOLUTION [Concomitant]
     Dosage: 5 ML, BID
     Route: 055
     Dates: start: 2014
  14. PULMOZYME [Concomitant]
     Indication: CYSTIC FIBROSIS
     Dosage: 2.5 MG, UNK
     Route: 055
     Dates: start: 1998
  15. PULMOZYME [Concomitant]
     Dosage: 2.5 MG, UNK
     Route: 055
     Dates: start: 2014
  16. COLOMYCIN [Concomitant]
     Indication: CYSTIC FIBROSIS
     Dosage: UNK, BID
     Route: 055
     Dates: start: 2009
  17. CREON 25000 [Concomitant]
     Indication: CYSTIC FIBROSIS
     Dosage: 1000 IU, WITH MEALS
     Route: 048
     Dates: start: 1996
  18. ABDEC [Concomitant]
     Indication: HYPOVITAMINOSIS
     Dosage: 2 DF, QD
     Route: 048
     Dates: start: 2011
  19. VITAMIN K [Concomitant]
     Dosage: 2 DF, BID
     Route: 048
  20. PRILOSEC [Concomitant]
     Indication: GASTROOESOPHAGEAL REFLUX DISEASE
     Dosage: 20 MG, QD
     Route: 048
     Dates: start: 1995
  21. VENTOLIN [Concomitant]
     Dosage: 200 ?G, QID
     Route: 055
  22. VITAMIN D3 [Concomitant]
     Dosage: 1000 IU, QD
     Route: 048
  23. LORATADINE [Concomitant]
     Dosage: 10 MG, QD
     Route: 048
  24. MEROPENEM [Concomitant]
     Indication: CYSTIC FIBROSIS
     Dosage: UNK
     Route: 042
     Dates: start: 20140128, end: 20140207
  25. MEROPENEM [Concomitant]
     Indication: INFECTIVE PULMONARY EXACERBATION OF CYSTIC FIBROSIS
     Dosage: 2 G, TID
     Route: 042
     Dates: start: 20140228, end: 20140312
  26. TOBRAMYCIN [Concomitant]
     Indication: CYSTIC FIBROSIS
     Dosage: UNK
     Route: 042
     Dates: start: 20140128, end: 20140207
  27. TOBRAMYCIN [Concomitant]
     Indication: INFECTIVE PULMONARY EXACERBATION OF CYSTIC FIBROSIS
     Dosage: 480 MG, QD
     Route: 042
     Dates: start: 20140228, end: 20140312

REACTIONS (1)
  - Haemoptysis [Recovered/Resolved]
